FAERS Safety Report 22344039 (Version 1)
Quarter: 2023Q2

REPORT INFORMATION
  Report Type: Spontaneous
  Country: US (occurrence: US)
  Receive Date: 20230519
  Receipt Date: 20230519
  Transmission Date: 20230721
  Serious: No
  Sender: FDA-Public Use
  Company Number: US-TAKEDA-2023TUS049823

PATIENT
  Age: 62 Year
  Sex: Female

DRUGS (1)
  1. MOTEGRITY [Suspect]
     Active Substance: PRUCALOPRIDE SUCCINATE
     Indication: Product used for unknown indication
     Dosage: 0.5 DOSAGE FORM
     Route: 065

REACTIONS (2)
  - Amnesia [Unknown]
  - Wrong technique in product usage process [Unknown]
